FAERS Safety Report 6448047-8 (Version None)
Quarter: 2009Q4

REPORT INFORMATION
  Report Type: 
  Country: None (occurrence: None)
  Receive Date: 20091120
  Receipt Date: 20091111
  Transmission Date: 20100525
  Serious: Yes (Other)
  Sender: FDA-Public Use
  Company Number: US-JNJFOC-20091103858

PATIENT
  Sex: Male
  Weight: 77.11 kg

DRUGS (2)
  1. REMICADE [Suspect]
     Indication: SPONDYLITIS
     Route: 042
  2. NAPROSYN [Concomitant]
     Route: 048

REACTIONS (1)
  - COCCIDIOIDOMYCOSIS [None]
